FAERS Safety Report 11336523 (Version 1)
Quarter: 2015Q3

REPORT INFORMATION
  Report Type: Other
  Country: CA (occurrence: CA)
  Receive Date: 20150804
  Receipt Date: 20150804
  Transmission Date: 20151125
  Serious: Yes (Death, Other)
  Sender: FDA-Public Use
  Company Number: CA-APOTEX-2015AP010895

PATIENT

DRUGS (1)
  1. APO-RILUZOLE [Suspect]
     Active Substance: RILUZOLE
     Indication: AMYOTROPHIC LATERAL SCLEROSIS
     Dosage: 1 DF, BID
     Route: 048

REACTIONS (2)
  - Cerebral haemorrhage [Fatal]
  - Fall [Fatal]
